FAERS Safety Report 6802684-7 (Version None)
Quarter: 2010Q2

REPORT INFORMATION
  Report Type: 
  Country: None (occurrence: None)
  Receive Date: 20100628
  Receipt Date: 20100615
  Transmission Date: 20101027
  Serious: Yes (Other)
  Sender: FDA-Public Use
  Company Number: PHHY2010FR28929

PATIENT
  Sex: Female
  Weight: 60 kg

DRUGS (5)
  1. ACLASTA [Suspect]
     Indication: OSTEOPOROSIS POSTMENOPAUSAL
     Dosage: 5 MG
     Route: 042
     Dates: start: 20100415
  2. ACLASTA [Suspect]
     Indication: OSTEOPOROTIC FRACTURE
  3. STEROGYL [Concomitant]
     Dosage: 3 DROPS DAILY
  4. MOPRAL [Concomitant]
     Dosage: 20 MG DAILY
  5. DOLIPRANE [Concomitant]
     Dosage: 4 MG DAILY

REACTIONS (12)
  - ARTHRALGIA [None]
  - ARTHRITIS [None]
  - C-REACTIVE PROTEIN INCREASED [None]
  - CHILLS [None]
  - MALAISE [None]
  - MYALGIA [None]
  - PYREXIA [None]
  - RED BLOOD CELL SEDIMENTATION RATE INCREASED [None]
  - SYNOVITIS [None]
  - SYSTEMIC INFLAMMATORY RESPONSE SYNDROME [None]
  - TENOSYNOVITIS [None]
  - TREMOR [None]
